FAERS Safety Report 12414205 (Version 4)
Quarter: 2016Q3

REPORT INFORMATION
  Report Type: Report from Study
  Country: US (occurrence: US)
  Receive Date: 20160527
  Receipt Date: 20160909
  Transmission Date: 20161109
  Serious: Yes (Hospitalization)
  Sender: FDA-Public Use
  Company Number: US-BIOGEN-2016BI00241373

PATIENT
  Age: 60 Year
  Sex: Female

DRUGS (5)
  1. TECFIDERA [Suspect]
     Active Substance: DIMETHYL FUMARATE
     Indication: MULTIPLE SCLEROSIS
     Route: 048
     Dates: start: 20130909
  2. LISINOPRIL. [Concomitant]
     Active Substance: LISINOPRIL
     Indication: BLOOD CHOLESTEROL INCREASED
     Route: 048
  3. VITAMIN D [Concomitant]
     Active Substance: CHOLECALCIFEROL
     Indication: PRODUCT USED FOR UNKNOWN INDICATION
     Route: 065
     Dates: start: 2013
  4. HYDROCLOROTHIAZIDE [Concomitant]
     Indication: HYPERTENSION
     Route: 048
  5. TECFIDERA [Suspect]
     Active Substance: DIMETHYL FUMARATE
     Route: 048
     Dates: start: 20130917

REACTIONS (9)
  - Osteopenia [Unknown]
  - Nephropathy [Not Recovered/Not Resolved]
  - Ligament sprain [Recovered/Resolved]
  - Ankle fracture [Recovered/Resolved]
  - Impaired self-care [Recovered/Resolved]
  - Stress [Not Recovered/Not Resolved]
  - Fall [Recovered/Resolved]
  - Nerve root compression [Not Recovered/Not Resolved]
  - Visual impairment [Not Recovered/Not Resolved]

NARRATIVE: CASE EVENT DATE: 20160128
